FAERS Safety Report 6706303-X (Version None)
Quarter: 2010Q2

REPORT INFORMATION
  Report Type: 
  Country: None (occurrence: None)
  Receive Date: 20100430
  Receipt Date: 20100430
  Transmission Date: 20101027
  Serious: Yes (Other)
  Sender: FDA-Public Use
  Company Number: None

PATIENT
  Sex: Female
  Weight: 68.0396 kg

DRUGS (2)
  1. TRANSDERM SCOP [Suspect]
     Indication: MOTION SICKNESS
     Dosage: 1 PATCH Q3DAYS CUTANEOUS
     Route: 003
     Dates: start: 20100420, end: 20100422
  2. TRANSDERM SCOP [Suspect]
     Indication: MOTION SICKNESS
     Dosage: 1 PATCH Q3DAYS CUTANEOUS
     Route: 003
     Dates: start: 20100423, end: 20100426

REACTIONS (3)
  - NAUSEA [None]
  - PRODUCT ADHESION ISSUE [None]
  - VERTIGO [None]
